FAERS Safety Report 7468232-6 (Version None)
Quarter: 2011Q2

REPORT INFORMATION
  Report Type: 
  Country: None (occurrence: None)
  Receive Date: 20110509
  Receipt Date: 20110429
  Transmission Date: 20111010
  Serious: Yes (Hospitalization)
  Sender: FDA-Public Use
  Company Number: US-ASTRAZENECA-2011SE25094

PATIENT
  Age: 46 Year
  Sex: Male
  Weight: 86.2 kg

DRUGS (6)
  1. SEROQUEL XR [Suspect]
     Indication: BIPOLAR DISORDER
     Route: 048
     Dates: start: 20100601
  2. CELEXA [Concomitant]
  3. SEROQUEL XR [Suspect]
     Route: 048
  4. KLONOPIN [Concomitant]
  5. LAMICTAL [Concomitant]
  6. RESTORIL [Concomitant]

REACTIONS (5)
  - BIPOLAR I DISORDER [None]
  - HALLUCINATION, AUDITORY [None]
  - DRUG DOSE OMISSION [None]
  - NIGHTMARE [None]
  - VIOLENCE-RELATED SYMPTOM [None]
